FAERS Safety Report 17860762 (Version 2)
Quarter: 2020Q2

REPORT INFORMATION
  Report Type: Report from Study
  Country: US (occurrence: US)
  Receive Date: 20200604
  Receipt Date: 20200629
  Transmission Date: 20200714
  Serious: Yes (Death, Hospitalization)
  Sender: FDA-Public Use
  Company Number: US-PUMA BIOTECHNOLOGY, LTD.-2020US001733

PATIENT

DRUGS (3)
  1. NERLYNX [Suspect]
     Active Substance: NERATINIB
     Indication: BREAST CANCER FEMALE
     Dosage: 240 MG, DAILY
     Route: 048
     Dates: start: 20200311, end: 20200415
  2. NERLYNX [Suspect]
     Active Substance: NERATINIB
     Indication: OESTROGEN RECEPTOR ASSAY NEGATIVE
     Dosage: 240 MG, DAILY
     Route: 048
     Dates: start: 20200511, end: 2020
  3. IMODIUM [Concomitant]
     Active Substance: LOPERAMIDE HYDROCHLORIDE
     Indication: PROPHYLAXIS AGAINST DIARRHOEA

REACTIONS (7)
  - Diarrhoea [Unknown]
  - Nasal congestion [Unknown]
  - Nausea [Unknown]
  - Fatigue [Unknown]
  - Death [Fatal]
  - Hospitalisation [Unknown]
  - Dyspepsia [Recovering/Resolving]

NARRATIVE: CASE EVENT DATE: 2020
